FAERS Safety Report 10142964 (Version 3)
Quarter: 2014Q3

REPORT INFORMATION
  Report Type: Spontaneous
  Country: US (occurrence: None)
  Receive Date: 20140428
  Receipt Date: 20140828
  Transmission Date: 20150326
  Serious: Yes (Hospitalization)
  Sender: FDA-Public Use
  Company Number: CIO14028110

PATIENT
  Age: 74 Year
  Sex: Female

DRUGS (3)
  1. CHOLESTEROL-AND TRIGLYCERIDE REDUCERS [Concomitant]
  2. ZZZQUIL NIGHTTIME SLEEP-AID [Suspect]
     Active Substance: DIPHENHYDRAMINE HYDROCHLORIDE
     Dosage: RECOMMENDED DOSE, 1 ONLY ORAL
     Route: 048
     Dates: start: 20140408, end: 20140408
  3. VITAMINS /90003601/ [Concomitant]
     Active Substance: VITAMINS

REACTIONS (5)
  - Dizziness [None]
  - Syncope [None]
  - Head injury [None]
  - Bronchitis [None]
  - Fall [None]

NARRATIVE: CASE EVENT DATE: 20140409
